FAERS Safety Report 7732459-6 (Version None)
Quarter: 2011Q3

REPORT INFORMATION
  Report Type: 
  Country: None (occurrence: None)
  Receive Date: 20110906
  Receipt Date: 20110823
  Transmission Date: 20111222
  Serious: Yes (Other)
  Sender: FDA-Public Use
  Company Number: CH-ELI_LILLY_AND_COMPANY-CH201108007025

PATIENT
  Age: 29 Year
  Sex: Female

DRUGS (2)
  1. CYMBALTA [Suspect]
     Dosage: UNK UNK, UNKNOWN
  2. CYMBALTA [Suspect]
     Dosage: UNK, QD

REACTIONS (1)
  - MATERNAL EXPOSURE DURING PREGNANCY [None]
